FAERS Safety Report 8586244-6 (Version None)
Quarter: 2012Q3

REPORT INFORMATION
  Report Type: 
  Country: None (occurrence: None)
  Receive Date: 20120810
  Receipt Date: 20120801
  Transmission Date: 20120928
  Serious: Yes (Other)
  Sender: FDA-Public Use
  Company Number: GB-ROCHE-1097068

PATIENT
  Sex: Male

DRUGS (1)
  1. ACTEMRA [Suspect]
     Indication: STILL'S DISEASE ADULT ONSET
     Dates: start: 20120612, end: 20120612

REACTIONS (4)
  - CHILLS [None]
  - TACHYCARDIA [None]
  - NAUSEA [None]
  - FLUSHING [None]
